FAERS Safety Report 21275360 (Version 2)
Quarter: 2022Q3

REPORT INFORMATION
  Report Type: Spontaneous
  Country: US (occurrence: US)
  Receive Date: 20220831
  Receipt Date: 20220909
  Transmission Date: 20221027
  Serious: Yes (Death)
  Sender: FDA-Public Use
  Company Number: US-MALLINCKRODT-T202204674

PATIENT
  Age: 54 Year
  Sex: Female

DRUGS (2)
  1. INOMAX [Suspect]
     Active Substance: NITRIC OXIDE
     Indication: Chronic respiratory failure
     Dosage: 40 PPM (INHALATION), GOING THROUGH 1 X TANK EVERY 12 HOURS
     Route: 055
  2. INOMAX [Suspect]
     Active Substance: NITRIC OXIDE
     Dosage: 20 PPM (INHALATION)
     Route: 055
     Dates: start: 20220825, end: 20220826

REACTIONS (3)
  - Chronic respiratory failure [Fatal]
  - Product use issue [Unknown]
  - Product use in unapproved indication [Unknown]

NARRATIVE: CASE EVENT DATE: 20220801
